FAERS Safety Report 7830000-0 (Version None)
Quarter: 2011Q4

REPORT INFORMATION
  Report Type: 
  Country: None (occurrence: None)
  Receive Date: 20111021
  Receipt Date: 20111012
  Transmission Date: 20120403
  Serious: Yes (Hospitalization)
  Sender: FDA-Public Use
  Company Number: US-US-EMD SERONO, INC.-7089662

PATIENT
  Sex: Male

DRUGS (1)
  1. REBIF [Suspect]
     Indication: PRODUCT USED FOR UNKNOWN INDICATION
     Dates: start: 20101229, end: 20110801

REACTIONS (2)
  - CHOLECYSTITIS INFECTIVE [None]
  - TOOTH INFECTION [None]
